FAERS Safety Report 6245198-8 (Version None)
Quarter: 2009Q2

REPORT INFORMATION
  Report Type: 
  Country: None (occurrence: None)
  Receive Date: 20090625
  Receipt Date: 20090619
  Transmission Date: 20091009
  Serious: Yes (Death, Hospitalization, Other)
  Sender: FDA-Public Use
  Company Number: PHHY2009BR24780

PATIENT
  Sex: Female

DRUGS (1)
  1. FORASEQ [Suspect]
     Indication: DYSPNOEA
     Dosage: ONE CAPSULE OF EACH ACTIVE 2 TIMES DAILY
     Dates: start: 20080401, end: 20090528

REACTIONS (5)
  - CONSTIPATION [None]
  - FEELING ABNORMAL [None]
  - GASTROINTESTINAL INFECTION [None]
  - RESPIRATORY DISORDER [None]
  - RESPIRATORY TRACT INFECTION [None]
